FAERS Safety Report 8351241-2 (Version None)
Quarter: 2012Q2

REPORT INFORMATION
  Report Type: 
  Country: None (occurrence: None)
  Receive Date: 20120510
  Receipt Date: 20120501
  Transmission Date: 20120825
  Serious: Yes (Other)
  Sender: FDA-Public Use
  Company Number: US-ASTRAZENECA-2012SE28526

PATIENT
  Age: 89 Year
  Sex: Female

DRUGS (4)
  1. DIOVAN [Concomitant]
  2. CRESTOR [Suspect]
     Route: 048
  3. TOPROL-XL [Suspect]
     Route: 048
  4. TRICOR [Concomitant]

REACTIONS (2)
  - OSTEOARTHRITIS [None]
  - HIP FRACTURE [None]
